FAERS Safety Report 8026034-6 (Version None)
Quarter: 2012Q1

REPORT INFORMATION
  Report Type: 
  Country: None (occurrence: None)
  Receive Date: 20120105
  Receipt Date: 20110512
  Transmission Date: 20120608
  Serious: No
  Sender: FDA-Public Use
  Company Number: US-ABBOTT-11P-163-0725790-00

PATIENT
  Age: 69 Year
  Sex: Male
  Weight: 88.53 kg

DRUGS (3)
  1. COUMADIN [Concomitant]
     Indication: PRODUCT USED FOR UNKNOWN INDICATION
  2. SYNTHROID [Suspect]
     Indication: HYPOTHYROIDISM
     Dates: start: 20110510
  3. INSULIN [Concomitant]
     Indication: DIABETES MELLITUS

REACTIONS (4)
  - DECREASED APPETITE [None]
  - HYPOPHAGIA [None]
  - HYPERCHLORHYDRIA [None]
  - DYSGEUSIA [None]
